FAERS Safety Report 11782652 (Version 1)
Quarter: 2015Q4

REPORT INFORMATION
  Report Type: Report from Study
  Country: US (occurrence: US)
  Receive Date: 20151127
  Receipt Date: 20151127
  Transmission Date: 20160305
  Serious: No
  Sender: FDA-Public Use
  Company Number: PHEH2015US024645

PATIENT

DRUGS (1)
  1. ZYKADIA [Suspect]
     Active Substance: CERITINIB
     Indication: PROSTATE CANCER
     Dosage: 750 MG, QD
     Route: 048
     Dates: start: 20150711

REACTIONS (2)
  - Diarrhoea [Unknown]
  - Nausea [Unknown]
